FAERS Safety Report 13124268 (Version 6)
Quarter: 2017Q1

REPORT INFORMATION
  Report Type: Spontaneous
  Country: US (occurrence: US)
  Receive Date: 20170118
  Receipt Date: 20170324
  Transmission Date: 20170428
  Serious: Yes (Hospitalization, Other)
  Sender: FDA-Public Use
  Company Number: US-CELGENEUS-USA-2016123094

PATIENT
  Age: 80 Year
  Sex: Male

DRUGS (9)
  1. POMALYST [Suspect]
     Active Substance: POMALIDOMIDE
     Dosage: 2 MG
     Route: 048
     Dates: start: 20161202, end: 20161215
  2. KEFLEX [Concomitant]
     Active Substance: CEPHALEXIN
     Indication: PRODUCT USED FOR UNKNOWN INDICATION
     Dosage: 1500 MILLIGRAM
     Route: 065
     Dates: start: 20160914
  3. POMALYST [Suspect]
     Active Substance: POMALIDOMIDE
     Indication: PLASMA CELL MYELOMA
     Dosage: 4 MG
     Route: 048
     Dates: start: 20160614
  4. POMALYST [Suspect]
     Active Substance: POMALIDOMIDE
     Indication: AMYLOIDOSIS
     Dosage: 3 MG
     Route: 048
     Dates: start: 20160801
  5. CIPRO [Concomitant]
     Active Substance: CIPROFLOXACIN HYDROCHLORIDE
     Indication: PRODUCT USED FOR UNKNOWN INDICATION
     Dosage: 1000 MILLIGRAM
     Route: 065
     Dates: start: 20160711
  6. ACYCLOVIR. [Concomitant]
     Active Substance: ACYCLOVIR
     Indication: PROPHYLAXIS
     Dosage: 400 MILLIGRAM
     Route: 065
  7. POMALYST [Suspect]
     Active Substance: POMALIDOMIDE
     Dosage: 2 MG
     Route: 048
     Dates: start: 201612, end: 20170106
  8. LEVAQUIN [Concomitant]
     Active Substance: LEVOFLOXACIN
     Indication: PRODUCT USED FOR UNKNOWN INDICATION
     Dosage: 1000 MILLIGRAM
     Route: 065
     Dates: start: 20160711
  9. NEUPOGEN [Concomitant]
     Active Substance: FILGRASTIM
     Indication: PRODUCT USED FOR UNKNOWN INDICATION
     Dosage: 900 MICROGRAM
     Route: 065
     Dates: start: 20160715

REACTIONS (5)
  - Diverticulitis [Unknown]
  - Infection [Unknown]
  - Neutrophil count decreased [Recovered/Resolved]
  - Sinusitis [Unknown]
  - White blood cell count decreased [Recovered/Resolved]

NARRATIVE: CASE EVENT DATE: 20161201
